FAERS Safety Report 21800194 (Version 1)
Quarter: 2022Q4

REPORT INFORMATION
  Report Type: Report from Study
  Country: GB (occurrence: GB)
  Receive Date: 20221230
  Receipt Date: 20221230
  Transmission Date: 20230113
  Serious: Yes (Death)
  Sender: FDA-Public Use
  Company Number: GB-PFIZER INC-202201393993

PATIENT

DRUGS (5)
  1. FLUOROURACIL [Suspect]
     Active Substance: FLUOROURACIL
     Indication: Pancreatic carcinoma
     Dosage: ON DAYS 1 AND 15, REPEATED EVERY 2 WEEKS FOR FOUR CYCLES
     Route: 040
  2. FLUOROURACIL [Suspect]
     Active Substance: FLUOROURACIL
     Dosage: 46 H INFUSION ON DAYS 1 AND 15, REPEATED EVERY 2 WEEKS FOR FOUR CYCLES
     Route: 042
  3. IRINOTECAN HYDROCHLORIDE [Suspect]
     Active Substance: IRINOTECAN HYDROCHLORIDE
     Indication: Pancreatic carcinoma
     Dosage: REPEATED EVERY 2 WEEKS FOR FOUR CYCLES
  4. OXALIPLATIN [Suspect]
     Active Substance: OXALIPLATIN
     Indication: Pancreatic carcinoma
     Dosage: REPEATED EVERY 2 WEEKS FOR FOUR CYCLES
  5. LEUCOVORIN CALCIUM [Suspect]
     Active Substance: LEUCOVORIN CALCIUM
     Indication: Pancreatic carcinoma
     Dosage: GIVEN ACCORDING TO LOCAL PRACTICE, REPEATED EVERY 2 WEEKS FOR FOUR CYCLES

REACTIONS (2)
  - Cardiogenic shock [Fatal]
  - Hepatic function abnormal [Fatal]
